FAERS Safety Report 9433442 (Version 4)
Quarter: 2013Q4

REPORT INFORMATION
  Report Type: Report from Study
  Country: US (occurrence: US)
  Receive Date: 20130731
  Receipt Date: 20131007
  Transmission Date: 20140711
  Serious: Yes (Other)
  Sender: FDA-Public Use
  Company Number: US-TEVA-422312USA

PATIENT
  Age: 33 Year
  Sex: Female

DRUGS (2)
  1. CLARAVIS [Suspect]
     Dosage: 40 MG AND 10 MG ONCE DAILY
     Route: 048
     Dates: start: 20130126, end: 20130722
  2. ORTHO-TRI-CYCLEN [Concomitant]

REACTIONS (1)
  - Unintended pregnancy [Recovered/Resolved]
